FAERS Safety Report 9772092 (Version 2)
Quarter: 2013Q4

REPORT INFORMATION
  Report Type: Spontaneous
  Country: DE (occurrence: DE)
  Receive Date: 20131219
  Receipt Date: 20131230
  Transmission Date: 20140711
  Serious: Yes (Other)
  Sender: FDA-Public Use
  Company Number: DE-JNJFOC-20131210207

PATIENT
  Age: 76 Year
  Sex: Male
  Weight: 76 kg

DRUGS (1)
  1. XARELTO [Suspect]
     Indication: CEREBROVASCULAR ACCIDENT PROPHYLAXIS
     Route: 048
     Dates: start: 20130903, end: 20131209

REACTIONS (5)
  - Anaemia [Unknown]
  - Dyspnoea exertional [Recovered/Resolved]
  - Dyspnoea at rest [Unknown]
  - Dizziness [Unknown]
  - Fatigue [Unknown]
